FAERS Safety Report 24327549 (Version 1)
Quarter: 2024Q3

REPORT INFORMATION
  Report Type: Spontaneous
  Country: US (occurrence: US)
  Receive Date: 20240917
  Receipt Date: 20240917
  Transmission Date: 20241016
  Serious: Yes (Life-Threatening)
  Sender: EPIC PHARM
  Company Number: US-EPICPHARMA-US-2024EPCSPO01106

PATIENT

DRUGS (1)
  1. BUPROPION HYDROCHLORIDE [Suspect]
     Active Substance: BUPROPION HYDROCHLORIDE
     Indication: Product used for unknown indication
     Route: 065

REACTIONS (9)
  - Depression [Unknown]
  - Anhedonia [Unknown]
  - Headache [Unknown]
  - Insomnia [Unknown]
  - Anxiety [Unknown]
  - Drug ineffective [Unknown]
  - Manufacturing materials issue [Unknown]
  - Therapeutic response changed [Unknown]
  - Product substitution issue [Unknown]
